FAERS Safety Report 14015222 (Version 1)
Quarter: 2017Q3

REPORT INFORMATION
  Report Type: Spontaneous
  Country: US (occurrence: None)
  Receive Date: 20170927
  Receipt Date: 20170927
  Transmission Date: 20171128
  Serious: Yes (Hospitalization)
  Sender: FDA-Public Use
  Company Number: None

PATIENT
  Age: 86 Year
  Sex: Female
  Weight: 61.23 kg

DRUGS (3)
  1. METOPROLOL SUCCINATE ER [Concomitant]
     Active Substance: METOPROLOL SUCCINATE
  2. NP THYROID [Concomitant]
     Active Substance: LEVOTHYROXINE\LIOTHYRONINE
  3. TIZANDINE HCL 4MG [Suspect]
     Active Substance: TIZANIDINE HYDROCHLORIDE
     Indication: NECK PAIN
     Route: 048
     Dates: start: 20170414

REACTIONS (1)
  - Dementia Alzheimer^s type [None]

NARRATIVE: CASE EVENT DATE: 20170414
